FAERS Safety Report 10560389 (Version 1)
Quarter: 2014Q4

REPORT INFORMATION
  Report Type: Spontaneous
  Country: US (occurrence: None)
  Receive Date: 20141031
  Receipt Date: 20141031
  Transmission Date: 20150529
  Serious: Yes (Hospitalization)
  Sender: FDA-Public Use
  Company Number: None

PATIENT
  Age: 82 Year
  Sex: Female
  Weight: 89 kg

DRUGS (1)
  1. MORPHINE SULFATE EXTENDED-RELEASE [Suspect]
     Active Substance: MORPHINE SULFATE
     Route: 048
     Dates: start: 20140118

REACTIONS (4)
  - Hypoxia [None]
  - Depressed level of consciousness [None]
  - Unresponsive to stimuli [None]
  - Pain [None]

NARRATIVE: CASE EVENT DATE: 20140118
